FAERS Safety Report 6634270-6 (Version None)
Quarter: 2010Q1

REPORT INFORMATION
  Report Type: 
  Country: None (occurrence: None)
  Receive Date: 20100315
  Receipt Date: 20100308
  Transmission Date: 20100710
  Serious: Yes (Other)
  Sender: FDA-Public Use
  Company Number: PHHY2010BR03512

PATIENT
  Sex: Male

DRUGS (3)
  1. EXELON [Suspect]
     Indication: DEMENTIA ALZHEIMER'S TYPE
     Dosage: 9 MG, 1 PATCH DAILY
     Route: 062
  2. TRILEPTAL [Suspect]
     Indication: CONVULSION
     Dosage: 300 MG, BID
  3. PROLOPA [Concomitant]
     Indication: MUSCLE RIGIDITY
     Dosage: HALF A TABLET IN THE MORNING, 1 TABLET AT LUNCH, HALF A TABLET IN THE AFTERNOON, 1 TABLET AT NIGHT

REACTIONS (10)
  - AGGRESSION [None]
  - CONSTIPATION [None]
  - DECUBITUS ULCER [None]
  - DYSSTASIA [None]
  - HYPOPHAGIA [None]
  - IRRITABILITY [None]
  - PRESYNCOPE [None]
  - SOMNOLENCE [None]
  - TREMOR [None]
  - WEIGHT DECREASED [None]
